FAERS Safety Report 15831895 (Version 2)
Quarter: 2019Q1

REPORT INFORMATION
  Report Type: Report from Study
  Country: US (occurrence: US)
  Receive Date: 20190116
  Receipt Date: 20190313
  Transmission Date: 20190417
  Serious: Yes (Life-Threatening, Hospitalization, Other)
  Sender: FDA-Public Use
  Company Number: US-GILEAD-2018-0380939

PATIENT
  Age: 8 Year
  Sex: Female
  Weight: 47 kg

DRUGS (7)
  1. LASIX [Concomitant]
     Active Substance: FUROSEMIDE
  2. TRACLEER [Concomitant]
     Active Substance: BOSENTAN
  3. AMBRISENTAN [Suspect]
     Active Substance: AMBRISENTAN
     Indication: FALLOT^S TETRALOGY
  4. SILDENAFIL CITRATE. [Concomitant]
     Active Substance: SILDENAFIL CITRATE
  5. AMBRISENTAN [Suspect]
     Active Substance: AMBRISENTAN
     Indication: PULMONARY HYPERTENSION
     Dosage: 10 MG, QD
     Route: 065
     Dates: start: 20161216
  6. ORENITRAM [Concomitant]
     Active Substance: TREPROSTINIL
  7. DIGOXIN. [Concomitant]
     Active Substance: DIGOXIN

REACTIONS (8)
  - Malaise [Not Recovered/Not Resolved]
  - Haemoptysis [Recovered/Resolved]
  - Haemorrhage [Unknown]
  - Pulmonary haemorrhage [Unknown]
  - Bronchial disorder [Unknown]
  - Haemoptysis [Unknown]
  - Haematemesis [Recovered/Resolved]
  - Off label use [Not Recovered/Not Resolved]

NARRATIVE: CASE EVENT DATE: 20161216
